FAERS Safety Report 6354610-5 (Version None)
Quarter: 2009Q3

REPORT INFORMATION
  Report Type: 
  Country: None (occurrence: None)
  Receive Date: 20090909
  Receipt Date: 20090826
  Transmission Date: 20100115
  Serious: Yes (Other)
  Sender: FDA-Public Use
  Company Number: JP-1169957

PATIENT
  Age: 67 Year
  Sex: Male

DRUGS (8)
  1. AZOPT [Suspect]
     Indication: GLAUCOMA
     Dosage: 1 GTT BID OD OPHTHALMIC
     Route: 047
     Dates: start: 20080222, end: 20090624
  2. FLUOROMETHOLONE (FLUOROMETHOLONE) [Concomitant]
  3. XALATAN [Concomitant]
  4. RYSMON (TIMOLOL MALEATE) [Concomitant]
  5. ASPIRIN [Concomitant]
  6. DILTIAZEM [Concomitant]
  7. ZYLORIC (ALLOPURINOL SODIUM) [Concomitant]
  8. DIOVAN [Concomitant]

REACTIONS (2)
  - CORNEAL DEPOSITS [None]
  - CORNEAL DISORDER [None]
